FAERS Safety Report 10674969 (Version 3)
Quarter: 2015Q1

REPORT INFORMATION
  Report Type: Spontaneous
  Country: GB (occurrence: GB)
  Receive Date: 20141224
  Receipt Date: 20150122
  Transmission Date: 20150720
  Serious: Yes (Other)
  Sender: FDA-Public Use
  Company Number: GB-JNJFOC-20141212042

PATIENT
  Age: 25 Year
  Sex: Female

DRUGS (2)
  1. XARELTO [Suspect]
     Active Substance: RIVAROXABAN
     Indication: EMBOLISM VENOUS
     Route: 048
  2. XARELTO [Suspect]
     Active Substance: RIVAROXABAN
     Indication: PULMONARY EMBOLISM
     Route: 048

REACTIONS (8)
  - Sinus tachycardia [Unknown]
  - Inflammatory marker increased [Unknown]
  - Intracranial venous sinus thrombosis [Unknown]
  - Prothrombin time prolonged [Unknown]
  - Seizure [Unknown]
  - Headache [Unknown]
  - International normalised ratio increased [Unknown]
  - Coagulopathy [Recovered/Resolved]
